FAERS Safety Report 8612207-8 (Version None)
Quarter: 2012Q3

REPORT INFORMATION
  Report Type: 
  Country: None (occurrence: None)
  Receive Date: 20120822
  Receipt Date: 20120821
  Transmission Date: 20120928
  Serious: Yes (Hospitalization, Other)
  Sender: FDA-Public Use
  Company Number: US-PFIZER INC-2012205380

PATIENT
  Age: 69 Year
  Sex: Male
  Weight: 95.238 kg

DRUGS (1)
  1. SOLU-MEDROL [Suspect]
     Dosage: UNK

REACTIONS (2)
  - WOUND DEHISCENCE [None]
  - ILEOSTOMY [None]
